FAERS Safety Report 7029235-9 (Version None)
Quarter: 2010Q3

REPORT INFORMATION
  Report Type: 
  Country: None (occurrence: None)
  Receive Date: 20100930
  Receipt Date: 20100920
  Transmission Date: 20110219
  Serious: Yes (Hospitalization)
  Sender: FDA-Public Use
  Company Number: 014199

PATIENT
  Sex: Female
  Weight: 58.0604 kg

DRUGS (4)
  1. LACOSAMIDE [Suspect]
     Indication: EPILEPSY
     Dosage: 300 MG BID ORAL
     Route: 048
  2. HYDROCORTISONE [Concomitant]
  3. CITALOPRAM HYDROBROMIDE [Concomitant]
  4. XANAX [Concomitant]

REACTIONS (2)
  - ANKLE FRACTURE [None]
  - JOINT DISLOCATION [None]
